FAERS Safety Report 15500058 (Version 2)
Quarter: 2018Q4

REPORT INFORMATION
  Report Type: Spontaneous
  Country: IT (occurrence: IT)
  Receive Date: 20181015
  Receipt Date: 20181015
  Transmission Date: 20190205
  Serious: Yes (Other)
  Sender: FDA-Public Use
  Company Number: PHHY2017IT043109

PATIENT
  Age: 53 Year
  Sex: Male

DRUGS (11)
  1. METHYLPREDNISOLONE. [Suspect]
     Active Substance: METHYLPREDNISOLONE
     Indication: FEBRILE NEUTROPENIA
     Dosage: 1 MG/KG, QD
     Route: 041
  2. PROCARBAZINE [Concomitant]
     Active Substance: PROCARBAZINE
     Indication: OLIGOASTROCYTOMA
     Route: 065
  3. MITOXANTRONE [Suspect]
     Active Substance: MITOXANTRONE HYDROCHLORIDE
     Indication: ACUTE PROMYELOCYTIC LEUKAEMIA
     Route: 065
  4. IDARUBICIN [Suspect]
     Active Substance: IDARUBICIN
     Indication: ACUTE PROMYELOCYTIC LEUKAEMIA
     Dosage: 12 MG/M2, UNK
     Route: 065
  5. TRETINOIN. [Suspect]
     Active Substance: TRETINOIN
     Indication: ACUTE PROMYELOCYTIC LEUKAEMIA
     Route: 065
  6. FILGRASTIM [Suspect]
     Active Substance: FILGRASTIM
     Indication: PRODUCT USED FOR UNKNOWN INDICATION
     Route: 065
  7. LEVETIRACETAM. [Suspect]
     Active Substance: LEVETIRACETAM
     Indication: EPILEPSY
     Route: 065
  8. LOMUSTINE. [Concomitant]
     Active Substance: LOMUSTINE
     Indication: OLIGOASTROCYTOMA
     Route: 065
  9. OXCARBAZEPINE. [Suspect]
     Active Substance: OXCARBAZEPINE
     Indication: PRODUCT USED FOR UNKNOWN INDICATION
     Route: 065
  10. METHYLPREDNISOLONE. [Suspect]
     Active Substance: METHYLPREDNISOLONE
     Indication: IMMUNE THROMBOCYTOPENIC PURPURA
  11. VINCRISTINE [Concomitant]
     Active Substance: VINCRISTINE
     Indication: OLIGOASTROCYTOMA
     Route: 065

REACTIONS (5)
  - Infection [Unknown]
  - Large granular lymphocytosis [Unknown]
  - Lymphocytosis [Unknown]
  - Febrile neutropenia [Unknown]
  - Disease progression [Unknown]
